FAERS Safety Report 4637566-2 (Version None)
Quarter: 2005Q2

REPORT INFORMATION
  Report Type: 
  Country: None (occurrence: None)
  Receive Date: 20050418
  Receipt Date: 20050406
  Transmission Date: 20051028
  Serious: Yes (Hospitalization)
  Sender: FDA-Public Use
  Company Number: FR-BOEHRINGER INGELHEIM PHARMACEUTICALS, INC.-2005-FF-00242FF

PATIENT
  Age: 39 Year
  Sex: Male
  Weight: 60 kg

DRUGS (6)
  1. VIRAMUNE [Suspect]
     Indication: HIV INFECTION
     Route: 048
     Dates: start: 20000815, end: 20041221
  2. ZIAGEN [Concomitant]
     Indication: HIV INFECTION
     Route: 048
     Dates: start: 20000815, end: 20041221
  3. REVIA [Concomitant]
     Indication: ALCOHOLIC PSYCHOSIS
     Route: 048
     Dates: start: 20041220, end: 20050114
  4. DITROPAN [Concomitant]
     Indication: URINARY INCONTINENCE
     Route: 048
  5. QUESTRAN [Concomitant]
     Route: 048
     Dates: start: 20041220, end: 20050114
  6. VIDEX [Concomitant]
     Indication: HIV INFECTION
     Route: 048
     Dates: start: 20040609, end: 20041221

REACTIONS (6)
  - ALCOHOLIC PSYCHOSIS [None]
  - DIALYSIS [None]
  - GENERAL PHYSICAL HEALTH DETERIORATION [None]
  - HYPERBILIRUBINAEMIA [None]
  - RENAL FAILURE ACUTE [None]
  - URINARY INCONTINENCE [None]
